FAERS Safety Report 5743853-7 (Version None)
Quarter: 2008Q2

REPORT INFORMATION
  Report Type: 
  Country: None (occurrence: None)
  Receive Date: 20080519
  Receipt Date: 20080519
  Transmission Date: 20081010
  Serious: No
  Sender: FDA-Public Use
  Company Number: None

PATIENT
  Age: 58 Year
  Sex: Male
  Weight: 131.5431 kg

DRUGS (1)
  1. SINGULAIR [Suspect]

REACTIONS (2)
  - IRRITABILITY [None]
  - MOOD ALTERED [None]
